FAERS Safety Report 25972187 (Version 1)
Quarter: 2025Q4

REPORT INFORMATION
  Report Type: Spontaneous
  Country: CN (occurrence: CN)
  Receive Date: 20251029
  Receipt Date: 20251029
  Transmission Date: 20260118
  Serious: Yes (Hospitalization)
  Sender: CSL BEHRING
  Company Number: CN-BEH-2025221979

PATIENT
  Age: 60 Year
  Sex: Male

DRUGS (2)
  1. VELPHORO [Suspect]
     Active Substance: SUCROFERRIC OXYHYDROXIDE
     Indication: Hyperphosphataemia
     Dosage: 0.50 G, QD, 2 TABLETS PER DAY
     Route: 048
     Dates: start: 202508, end: 20250920
  2. VELPHORO [Suspect]
     Active Substance: SUCROFERRIC OXYHYDROXIDE
     Dosage: 1 DF, QD, 1 TABLETS PER DAY
     Route: 065
     Dates: start: 20250920, end: 20250923

REACTIONS (4)
  - Diarrhoea [Recovering/Resolving]
  - Pleural effusion [Unknown]
  - Dehydration [Unknown]
  - Dyspnoea [Unknown]

NARRATIVE: CASE EVENT DATE: 20250101
